FAERS Safety Report 24682790 (Version 5)
Quarter: 2025Q2

REPORT INFORMATION
  Report Type: Spontaneous
  Country: US (occurrence: US)
  Receive Date: 20241201
  Receipt Date: 20250414
  Transmission Date: 20250716
  Serious: No
  Sender: SANOFI AVENTIS
  Company Number: US-SA-2024SA347427

PATIENT
  Age: 47 Year
  Sex: Female

DRUGS (36)
  1. DUPIXENT [Suspect]
     Active Substance: DUPILUMAB
     Indication: Chronic sinusitis
     Dosage: 300 MG, QOW
     Route: 058
     Dates: start: 202405
  2. DUPIXENT [Suspect]
     Active Substance: DUPILUMAB
     Indication: Nasal polyps
  3. DUPIXENT [Suspect]
     Active Substance: DUPILUMAB
     Indication: Chronic rhinosinusitis with nasal polyps
  4. DUPIXENT [Suspect]
     Active Substance: DUPILUMAB
     Indication: Asthma
  5. BUDESONIDE [Concomitant]
     Active Substance: BUDESONIDE
  6. OXCARBAZEPINE [Concomitant]
     Active Substance: OXCARBAZEPINE
     Dosage: TAKE 1 TABLET BY MOUTH DAILY. - ORAL
     Route: 048
  7. LEVOCETIRIZINE DIHYDROCHLORIDE [Concomitant]
     Active Substance: LEVOCETIRIZINE DIHYDROCHLORIDE
     Dosage: TAKE 1 TABLET BY MOUTH DAILY. - ORAL
     Route: 048
     Dates: start: 20180904
  8. NUCALA [Concomitant]
     Active Substance: MEPOLIZUMAB
     Dosage: 100 MG EVERY 4 WEEKS
     Route: 058
     Dates: start: 20241127
  9. FIBERCON [Concomitant]
     Active Substance: CALCIUM POLYCARBOPHIL
     Route: 048
  10. FLUCONAZOLE [Concomitant]
     Active Substance: FLUCONAZOLE
  11. EPINEPHRINE [Concomitant]
     Active Substance: EPINEPHRINE
     Indication: Mouth swelling
     Dates: start: 20230905
  12. EPINEPHRINE [Concomitant]
     Active Substance: EPINEPHRINE
     Indication: Dyspnoea
  13. EPINEPHRINE [Concomitant]
     Active Substance: EPINEPHRINE
     Indication: Loss of consciousness
  14. EPINEPHRINE [Concomitant]
     Active Substance: EPINEPHRINE
     Indication: Urticaria
  15. LUBIPROSTONE [Concomitant]
     Active Substance: LUBIPROSTONE
     Dosage: TAKE 1 CAPSULE BY MOUTH 2 TIMES DAILY. - ORAL
     Route: 048
  16. OMEPRAZOLE [Concomitant]
     Active Substance: OMEPRAZOLE
     Dosage: TAKE 1 CAPSULE BY MOUTH DAILY. - ORAL
     Route: 048
  17. DIPHENHYDRAMINE [Concomitant]
     Active Substance: DIPHENHYDRAMINE
     Dosage: TAKE 10 ML BY MOUTH 2 TIMES DAILY. - ORAL
     Route: 048
  18. HUMALOG [Concomitant]
     Active Substance: INSULIN LISPRO
     Dates: start: 20230626
  19. ALBUTEROL [Concomitant]
     Active Substance: ALBUTEROL
     Indication: Cough
  20. ALBUTEROL [Concomitant]
     Active Substance: ALBUTEROL
     Indication: Dyspnoea
  21. SOY ISOFLAVONES [SOYA ISOFLAVONES] [Concomitant]
     Route: 048
  22. EVENING PRIMROSE OIL [Concomitant]
     Active Substance: EVENING PRIMROSE OIL
     Route: 048
  23. QUINAPRIL [Concomitant]
     Active Substance: QUINAPRIL
     Dosage: 2 TIMES DAILY.
  24. MONTELUKAST [Concomitant]
     Active Substance: MONTELUKAST
     Dosage: 1 TABLET DAILY.
  25. ATORVASTATIN [Concomitant]
     Active Substance: ATORVASTATIN
     Dosage: 40 MG TAB TABLET DAILY.
  26. BASAGLAR [Concomitant]
     Active Substance: INSULIN GLARGINE
     Dates: start: 20230624
  27. BUSPIRONE [Concomitant]
     Active Substance: BUSPIRONE HYDROCHLORIDE
     Dates: start: 20221130
  28. LEVOTHYROXINE [Concomitant]
     Active Substance: LEVOTHYROXINE
     Dates: start: 20230830
  29. DESVENLAFAXINE SUCCINATE [Concomitant]
     Active Substance: DESVENLAFAXINE SUCCINATE
     Dates: start: 20221228
  30. VITAMIN B COMPLEX [CALCIUM PANTOTHENATE;CYANOCOBALAMIN;FOLIC ACID;NICO [Concomitant]
     Dosage: TAKE 1 TABLET BY MOUTH DAILY. - ORAL
     Route: 048
  31. FLUTICASONE FUROATE\SALMETEROL XINAFOATE [Concomitant]
     Active Substance: FLUTICASONE FUROATE\SALMETEROL XINAFOATE
     Dates: start: 20230714
  32. FLUTICASONE [Concomitant]
     Active Substance: FLUTICASONE
  33. MYRBETRIQ [Concomitant]
     Active Substance: MIRABEGRON
     Dosage: TAKE 1 TABLET BY MOUTH DAILY. - ORAL
     Route: 048
     Dates: start: 20230530
  34. SINGULAIR [Concomitant]
     Active Substance: MONTELUKAST SODIUM
     Dosage: 10 MG (ONE TABLET) DAILY
  35. CIPRODEX [Concomitant]
     Active Substance: CIPROFLOXACIN HYDROCHLORIDE\DEXAMETHASONE
     Dosage: 4 DROPS BY OTIC ROUTE 2 TIMES DAILY. INSTILL IN AFFECTED EAR(S) AS DIRECTED. - OTIC
     Dates: start: 20241115
  36. HERBALS\TURMERIC [Concomitant]
     Active Substance: HERBALS\TURMERIC
     Dosage: 1,000 MG DAILY.

REACTIONS (12)
  - Chronic sinusitis [Unknown]
  - Condition aggravated [Unknown]
  - Sneezing [Unknown]
  - Drainage [Unknown]
  - Vulvovaginal candidiasis [Not Recovered/Not Resolved]
  - Visual impairment [Unknown]
  - Vision blurred [Not Recovered/Not Resolved]
  - Skin exfoliation [Unknown]
  - Rash [Unknown]
  - Rash [Not Recovered/Not Resolved]
  - Rash [Recovered/Resolved]
  - Product use in unapproved indication [Unknown]

NARRATIVE: CASE EVENT DATE: 20240501
